FAERS Safety Report 6536656-7 (Version None)
Quarter: 2010Q1

REPORT INFORMATION
  Report Type: 
  Country: None (occurrence: None)
  Receive Date: 20100113
  Receipt Date: 20090625
  Transmission Date: 20100710
  Serious: Yes (Life-Threatening)
  Sender: FDA-Public Use
  Company Number: PHHO2009US08060

PATIENT
  Sex: Male
  Weight: 89.4 kg

DRUGS (3)
  1. PROLEUKIN [Suspect]
     Dosage: 600000 IU/KG, Q8H
     Route: 042
     Dates: start: 20080122, end: 20080127
  2. PROLEUKIN [Suspect]
     Dosage: 6000000 IU/KG, Q8H
     Route: 042
     Dates: start: 20080204, end: 20080207
  3. RAF265A RAF+ [Suspect]
     Indication: MALIGNANT MELANOMA
     Dosage: 30 MG
     Route: 048
     Dates: start: 20071210, end: 20080115

REACTIONS (1)
  - LYMPHOPENIA [None]
